FAERS Safety Report 14557625 (Version 1)
Quarter: 2018Q1

REPORT INFORMATION
  Report Type: Spontaneous
  Country: US (occurrence: US)
  Receive Date: 20180221
  Receipt Date: 20180221
  Transmission Date: 20180509
  Serious: No
  Sender: FDA-Public Use
  Company Number: US-009507513-1802USA005283

PATIENT
  Age: 22 Year
  Sex: Female
  Weight: 54.42 kg

DRUGS (1)
  1. NUVARING [Suspect]
     Active Substance: ETHINYL ESTRADIOL\ETONOGESTREL
     Dosage: DOCTOR PRESCRIBED IT 26 DAYS IN 2 DAYS OUT
     Route: 067
     Dates: start: 20180208

REACTIONS (3)
  - Inappropriate schedule of drug administration [Unknown]
  - Device expulsion [Unknown]
  - Drug prescribing error [Unknown]

NARRATIVE: CASE EVENT DATE: 201802
